FAERS Safety Report 17428990 (Version 1)
Quarter: 2020Q1

REPORT INFORMATION
  Report Type: Report from Study
  Country: US (occurrence: US)
  Receive Date: 20200218
  Receipt Date: 20200218
  Transmission Date: 20200409
  Serious: Yes (Hospitalization)
  Sender: FDA-Public Use
  Company Number: US-GLAXOSMITHKLINE-2018-TSO0782-US

PATIENT
  Age: 69 Year
  Sex: Female
  Weight: 61 kg

DRUGS (7)
  1. DOSTARLIMAB [Suspect]
     Active Substance: DOSTARLIMAB
     Indication: GASTRIC CANCER
     Dosage: 500 MG, UNK
     Route: 042
     Dates: start: 20180515, end: 20180515
  2. NIRAPARIB [Suspect]
     Active Substance: NIRAPARIB
     Dosage: UNK
     Dates: start: 20180927
  3. NIRAPARIB [Suspect]
     Active Substance: NIRAPARIB
     Indication: GASTRIC CANCER
     Dosage: 200 MG, UNK
     Route: 048
     Dates: start: 20180515, end: 20180926
  4. BEVACIZUMAB. [Suspect]
     Active Substance: BEVACIZUMAB
     Indication: GASTRIC CANCER
     Dosage: 15 MG/KG, UNK
     Route: 042
     Dates: start: 20180515, end: 20180926
  5. DOSTARLIMAB [Suspect]
     Active Substance: DOSTARLIMAB
     Dosage: 1000 MG, UNK
     Route: 042
     Dates: start: 20180918, end: 20180926
  6. DOSTARLIMAB [Suspect]
     Active Substance: DOSTARLIMAB
     Dosage: UNK
     Route: 042
     Dates: start: 20181030, end: 20181030
  7. BEVACIZUMAB. [Suspect]
     Active Substance: BEVACIZUMAB
     Dosage: UNK
     Dates: start: 20181009, end: 20181009

REACTIONS (1)
  - Hyponatraemia [Recovered/Resolved]

NARRATIVE: CASE EVENT DATE: 20180925
